FAERS Safety Report 8540891-6 (Version None)
Quarter: 2012Q3

REPORT INFORMATION
  Report Type: 
  Country: None (occurrence: None)
  Receive Date: 20120726
  Receipt Date: 20120724
  Transmission Date: 20120928
  Serious: No
  Sender: FDA-Public Use
  Company Number: US-PFIZER INC-2012179066

PATIENT
  Sex: Female

DRUGS (1)
  1. ARTHROTEC [Suspect]
     Indication: PAIN MANAGEMENT
     Dosage: 75 MG/200 MCG, 2X/DAY
     Route: 048
     Dates: start: 20120702, end: 20120717

REACTIONS (1)
  - URINARY INCONTINENCE [None]
